FAERS Safety Report 18343328 (Version 1)
Quarter: 2020Q4

REPORT INFORMATION
  Report Type: Spontaneous
  Country: US (occurrence: US)
  Receive Date: 20201003
  Receipt Date: 20201003
  Transmission Date: 20210113
  Serious: No
  Sender: FDA-Public Use
  Company Number: None

PATIENT
  Age: 28 Year
  Sex: Female
  Weight: 47.25 kg

DRUGS (11)
  1. CALCIUM CITRATE+D [Concomitant]
  2. TOPIRAMATE. [Concomitant]
     Active Substance: TOPIRAMATE
  3. GABAPENTIN. [Concomitant]
     Active Substance: GABAPENTIN
  4. LEVETIRACETAM. [Concomitant]
     Active Substance: LEVETIRACETAM
  5. NALTREXONE [Concomitant]
     Active Substance: NALTREXONE
  6. LATUDA [Concomitant]
     Active Substance: LURASIDONE HYDROCHLORIDE
  7. DULOXETINE. [Concomitant]
     Active Substance: DULOXETINE
  8. ESCITALOPRAM [Suspect]
     Active Substance: ESCITALOPRAM OXALATE
     Indication: DEPRESSION
     Dosage: ?          QUANTITY:1 TABLET(S);?
     Route: 048
  9. VALACYCLOVIR [Concomitant]
     Active Substance: VALACYCLOVIR HYDROCHLORIDE
  10. SUPER-B COMPLEX [Concomitant]
  11. BIOTIN [Concomitant]
     Active Substance: BIOTIN

REACTIONS (4)
  - Muscle twitching [None]
  - Pain in jaw [None]
  - Serotonin syndrome [None]
  - Toothache [None]

NARRATIVE: CASE EVENT DATE: 20200920
